FAERS Safety Report 20594471 (Version 1)
Quarter: 2022Q1

REPORT INFORMATION
  Report Type: Report from Study
  Country: US (occurrence: US)
  Receive Date: 20220315
  Receipt Date: 20220315
  Transmission Date: 20220424
  Serious: Yes (Other)
  Sender: FDA-Public Use
  Company Number: US-HBP-2021US024027

PATIENT
  Sex: Male
  Weight: 168.25 kg

DRUGS (10)
  1. VALCHLOR [Suspect]
     Active Substance: MECHLORETHAMINE
     Indication: Cutaneous T-cell lymphoma
     Dosage: UNK, UNKNOWN
     Route: 061
     Dates: start: 2014
  2. VALCHLOR [Suspect]
     Active Substance: MECHLORETHAMINE
     Dosage: THIN FILM, QOD
     Route: 061
     Dates: end: 202106
  3. VALCHLOR [Suspect]
     Active Substance: MECHLORETHAMINE
     Dosage: THIN FILM, QOD
     Route: 061
     Dates: start: 202107
  4. VALCHLOR [Suspect]
     Active Substance: MECHLORETHAMINE
     Dosage: UNK, 2/WEEK
     Route: 061
     Dates: end: 202109
  5. VALCHLOR [Suspect]
     Active Substance: MECHLORETHAMINE
     Dosage: UNK, QOD
     Route: 061
     Dates: start: 202109
  6. VALCHLOR [Suspect]
     Active Substance: MECHLORETHAMINE
     Dosage: UNK, UNKNOWN
     Route: 061
  7. LAMOTRIGINE [Concomitant]
     Active Substance: LAMOTRIGINE
     Dosage: UNK, QD
  8. BUSPAR [Concomitant]
     Active Substance: BUSPIRONE HYDROCHLORIDE
     Dosage: UNK, TID
  9. TRAZODONE [Concomitant]
     Active Substance: TRAZODONE HYDROCHLORIDE
     Dosage: UNK, ONCE AT NIGHT
  10. MIRTAZAPINE [Concomitant]
     Active Substance: MIRTAZAPINE
     Dosage: UNK, QD

REACTIONS (28)
  - Skin necrosis [Unknown]
  - Clostridium difficile infection [Unknown]
  - Drug intolerance [Unknown]
  - Skin discolouration [Unknown]
  - Dizziness [Unknown]
  - Depression [Unknown]
  - Asthenia [Unknown]
  - Fatigue [Unknown]
  - Product use complaint [Not Recovered/Not Resolved]
  - Product odour abnormal [Not Recovered/Not Resolved]
  - Therapy interrupted [Recovered/Resolved]
  - Condition aggravated [Unknown]
  - Vertigo [Unknown]
  - Off label use [Unknown]
  - Logorrhoea [Unknown]
  - Joint swelling [Recovering/Resolving]
  - Peripheral swelling [Unknown]
  - Gait disturbance [Unknown]
  - Herpes zoster [Unknown]
  - Overweight [Unknown]
  - Weight decreased [Unknown]
  - Product use issue [Unknown]
  - Joint stiffness [Unknown]
  - Inflammation [Unknown]
  - Treatment noncompliance [Unknown]
  - Application site vesicles [Recovering/Resolving]
  - Skin ulcer [Unknown]
  - Application site rash [Recovering/Resolving]

NARRATIVE: CASE EVENT DATE: 20140101
